FAERS Safety Report 23587456 (Version 5)
Quarter: 2025Q1

REPORT INFORMATION
  Report Type: Report from Study
  Country: US (occurrence: US)
  Receive Date: 20240301
  Receipt Date: 20250314
  Transmission Date: 20250409
  Serious: No
  Sender: ALEXION PHARMACEUTICALS
  Company Number: US-AstraZeneca-CH-00572875A

PATIENT
  Age: 37 Year
  Weight: 79.365 kg

DRUGS (1)
  1. STRENSIQ [Suspect]
     Active Substance: ASFOTASE ALFA
     Indication: Hypophosphatasia
     Dosage: 168 MILLIGRAM,TIW

REACTIONS (14)
  - Feeling abnormal [Not Recovered/Not Resolved]
  - Hyperhidrosis [Recovered/Resolved]
  - Pain [Recovered/Resolved]
  - Vitamin B6 decreased [Recovering/Resolving]
  - Staphylococcal infection [Recovering/Resolving]
  - Gait disturbance [Not Recovered/Not Resolved]
  - Metabolic acidosis [Not Recovered/Not Resolved]
  - Blood albumin increased [Not Recovered/Not Resolved]
  - Weight decreased [Recovered/Resolved]
  - Skin discolouration [Recovered/Resolved]
  - Pain in extremity [Recovered/Resolved]
  - Scab [Not Recovered/Not Resolved]
  - Skin wound [Not Recovered/Not Resolved]
  - Liquid product physical issue [Unknown]
